FAERS Safety Report 20306019 (Version 2)
Quarter: 2025Q3

REPORT INFORMATION
  Report Type: Spontaneous
  Country: EU (occurrence: EU)
  Receive Date: 20220106
  Receipt Date: 20250814
  Transmission Date: 20251021
  Serious: Yes (Disabling, Other)
  Sender: ALEXION PHARMACEUTICALS
  Company Number: 2021A788916

PATIENT
  Age: 54 Year
  Sex: Male

DRUGS (4)
  1. ROSUVASTATIN [Suspect]
     Active Substance: ROSUVASTATIN
     Indication: Dyslipidaemia
     Dosage: 20 MILLIGRAM, QD
  2. FINASTERIDE [Concomitant]
     Active Substance: FINASTERIDE
     Indication: Androgenetic alopecia
     Dosage: 1 MILLIGRAM, QD
     Route: 065
  3. IBUPROFEN [Concomitant]
     Active Substance: IBUPROFEN
     Indication: Pain
     Route: 065
  4. BETAMETHASONE [Concomitant]
     Active Substance: BETAMETHASONE
     Indication: Pain

REACTIONS (3)
  - Tendon calcification [Recovering/Resolving]
  - Arthralgia [Recovering/Resolving]
  - Tendon disorder [Recovering/Resolving]
